FAERS Safety Report 9727780 (Version 2)
Quarter: 2013Q4

REPORT INFORMATION
  Report Type: Other
  Country: GB (occurrence: GB)
  Receive Date: 20131203
  Receipt Date: 20131221
  Transmission Date: 20140711
  Serious: Yes (Death)
  Sender: FDA-Public Use
  Company Number: GB-SUN PHARMACEUTICAL INDUSTRIES LTD-2013SUN05090

PATIENT
  Age: 65 Year
  Sex: Female
  Weight: 68 kg

DRUGS (10)
  1. ANASTROZOLE 1MG FILM COATED TABLETS [Suspect]
     Indication: BREAST CANCER
     Dosage: 1 MG, OD
     Route: 048
     Dates: start: 20130726, end: 20131018
  2. AMLODIPINE [Concomitant]
     Indication: HYPERTENSION
     Dosage: 5 MG, UNK
     Route: 048
     Dates: start: 20130321
  3. AMLODIPINE [Concomitant]
     Dosage: UNK
     Dates: start: 20130708, end: 20131017
  4. ATENOLOL [Concomitant]
     Indication: HYPERTENSION
     Dosage: 3 MG, UNK
     Route: 048
     Dates: start: 2002
  5. ATENOLOL [Concomitant]
     Dosage: UNK
     Dates: start: 20130708, end: 20131017
  6. IBUPROFEN [Concomitant]
     Dosage: UNK
     Dates: start: 20130822, end: 20130919
  7. INDAPAMIDE [Concomitant]
     Indication: HYPERTENSION
     Dosage: 25 MG, UNK
     Route: 048
     Dates: start: 20130708
  8. INDAPAMIDE [Concomitant]
     Dosage: UNK
     Dates: start: 20130801, end: 20130829
  9. RAMIPRIL [Concomitant]
     Indication: HYPERTENSION
     Dosage: 1.25 MG, UNK
     Route: 048
     Dates: start: 20130821, end: 20130911
  10. RAMIPRIL [Concomitant]
     Dosage: 2.5 MG, UNK
     Route: 048
     Dates: start: 20130911

REACTIONS (2)
  - Cerebrovascular accident [Fatal]
  - Hair growth abnormal [Unknown]
